FAERS Safety Report 7332054-7 (Version None)
Quarter: 2011Q1

REPORT INFORMATION
  Report Type: 
  Country: None (occurrence: None)
  Receive Date: 20110304
  Receipt Date: 20100121
  Transmission Date: 20110831
  Serious: No
  Sender: FDA-Public Use
  Company Number: 2010BI002466

PATIENT
  Age: 38 Year
  Sex: Female

DRUGS (1)
  1. TYSABRI [Suspect]
     Indication: MULTIPLE SCLEROSIS
     Route: 042
     Dates: start: 20090909

REACTIONS (6)
  - EXCORIATION [None]
  - MOBILITY DECREASED [None]
  - CONTUSION [None]
  - FALL [None]
  - DYSSTASIA [None]
  - MUSCULOSKELETAL STIFFNESS [None]
